FAERS Safety Report 7962508-1 (Version None)
Quarter: 2011Q4

REPORT INFORMATION
  Report Type: 
  Country: None (occurrence: None)
  Receive Date: 20111207
  Receipt Date: 20111129
  Transmission Date: 20120403
  Serious: Yes (Other)
  Sender: FDA-Public Use
  Company Number: US-GLAXOSMITHKLINE-A0955766A

PATIENT
  Age: 50 Year
  Sex: Female

DRUGS (8)
  1. NADOLOL [Concomitant]
  2. NEURONTIN [Concomitant]
  3. ADVAIR DISKUS 100/50 [Suspect]
     Indication: CHRONIC OBSTRUCTIVE PULMONARY DISEASE
     Dosage: 1PUFF TWICE PER DAY
     Route: 055
     Dates: start: 20110801
  4. SYNTHROID [Concomitant]
  5. XANAX [Concomitant]
  6. ULTRAM [Concomitant]
  7. VENTOLIN HFA [Concomitant]
  8. MAXALT [Concomitant]

REACTIONS (3)
  - CHOKING [None]
  - ORAL DISCOMFORT [None]
  - RHONCHI [None]
